FAERS Safety Report 23730586 (Version 1)
Quarter: 2024Q2

REPORT INFORMATION
  Report Type: Spontaneous
  Country: KR (occurrence: KR)
  Receive Date: 20240411
  Receipt Date: 20240411
  Transmission Date: 20240716
  Serious: Yes (Other)
  Sender: FDA-Public Use
  Company Number: KR-009507513-2404KOR004948

PATIENT
  Sex: Female

DRUGS (3)
  1. KEYTRUDA [Suspect]
     Active Substance: PEMBROLIZUMAB
     Dosage: 200 MILLIGRAM, DOSAGE INTERVAL: 1 DAY
     Route: 042
     Dates: start: 20230308, end: 20230308
  2. PACLITAXEL [Suspect]
     Active Substance: PACLITAXEL
     Dosage: 98.64 MILLIGRAM, DOSAGE INTERVAL: 1 DAY
     Route: 042
     Dates: start: 20230308, end: 20230315
  3. CARBOPLATIN [Suspect]
     Active Substance: CARBOPLATIN
     Dosage: 419.8 MILLIGRAM, DOSAGE INTERVAL: 1 DAY
     Route: 042
     Dates: start: 20230308, end: 20230308

REACTIONS (1)
  - Leukopenia [Recovered/Resolved]

NARRATIVE: CASE EVENT DATE: 20230319
